FAERS Safety Report 8205904-X (Version None)
Quarter: 2012Q1

REPORT INFORMATION
  Report Type: 
  Country: None (occurrence: None)
  Receive Date: 20120313
  Receipt Date: 20120305
  Transmission Date: 20120608
  Serious: Yes (Other)
  Sender: FDA-Public Use
  Company Number: PHHY2012PL020177

PATIENT
  Age: 23 Year
  Sex: Female

DRUGS (6)
  1. FUROSEMIDE [Concomitant]
  2. PERINDOPRIL ERBUMINE [Concomitant]
  3. BROMOCRIPTINE MESYLATE [Suspect]
  4. EPLERENONE [Concomitant]
  5. TORSEMIDE [Concomitant]
  6. CARVEDILOL [Concomitant]

REACTIONS (4)
  - TRICUSPID VALVE INCOMPETENCE [None]
  - AORTIC VALVE INCOMPETENCE [None]
  - MITRAL VALVE INCOMPETENCE [None]
  - HEART INJURY [None]
